FAERS Safety Report 7517140-0 (Version None)
Quarter: 2011Q2

REPORT INFORMATION
  Report Type: 
  Country: None (occurrence: None)
  Receive Date: 20110601
  Receipt Date: 20110524
  Transmission Date: 20111010
  Serious: Yes (Other)
  Sender: FDA-Public Use
  Company Number: PHEH2007US12316

PATIENT
  Sex: Female

DRUGS (28)
  1. PREDNISONE [Concomitant]
  2. ETOPOSIDE [Concomitant]
  3. CYCLOPHOSPHAMIDE [Concomitant]
  4. CHEMOTHERAPEUTICS NOS [Concomitant]
  5. CLARITIN [Concomitant]
  6. MOTRIN [Concomitant]
  7. AMOXICILLIN [Concomitant]
  8. TAGAMET [Concomitant]
  9. ZANTAC [Concomitant]
  10. ZOFRAN [Concomitant]
  11. LEVOTHYROXINE SODIUM [Concomitant]
  12. BLEOMYCIN SULFATE [Concomitant]
  13. STEROID ANTIBACTERIALS [Concomitant]
  14. ELIDEL [Suspect]
     Indication: DERMATITIS
     Dosage: 30 G, UNK
     Route: 061
     Dates: start: 20020901
  15. BENADRYL ^ACHE^ [Concomitant]
  16. VINCRISTINE [Concomitant]
  17. FLONASE [Concomitant]
  18. INFLUENZA VACCINES [Concomitant]
  19. BACTRIM [Concomitant]
  20. DIPHENHYDRAMINE HCL [Concomitant]
  21. ONDANSETRON [Concomitant]
  22. GARDASIL [Concomitant]
  23. ACETAMINOPHEN [Concomitant]
  24. SYNTHROID [Concomitant]
  25. PHENERGAN [Concomitant]
  26. DOXORUBICIN HCL [Concomitant]
  27. PROMETHAZINE [Concomitant]
  28. ALBUTEROL SULFATE AUTOHALER [Concomitant]

REACTIONS (27)
  - CORNEAL NEOVASCULARISATION [None]
  - HYPOTHYROIDISM [None]
  - EAR INFECTION [None]
  - HYPERSENSITIVITY [None]
  - CONJUNCTIVITIS INFECTIVE [None]
  - PHOTOPHOBIA [None]
  - NAUSEA [None]
  - SINUSITIS [None]
  - HEADACHE [None]
  - PYREXIA [None]
  - THROAT IRRITATION [None]
  - PHARYNGITIS [None]
  - OSTEOCHONDRITIS [None]
  - PAIN [None]
  - VOMITING [None]
  - EYE PRURITUS [None]
  - MYOPIA [None]
  - HODGKIN'S DISEASE [None]
  - KERATITIS INTERSTITIAL [None]
  - VIRAL INFECTION [None]
  - NASAL CONGESTION [None]
  - HILAR LYMPHADENOPATHY [None]
  - LYMPHADENOPATHY [None]
  - CORNEAL OPACITY [None]
  - EYE IRRITATION [None]
  - DYSMENORRHOEA [None]
  - TENSION HEADACHE [None]
